FAERS Safety Report 9846840 (Version 2)
Quarter: 2014Q1

REPORT INFORMATION
  Report Type: Report from Study
  Country: US (occurrence: US)
  Receive Date: 20140127
  Receipt Date: 20140321
  Transmission Date: 20141002
  Serious: Yes (Hospitalization)
  Sender: FDA-Public Use
  Company Number: US-JNJFOC-20140115024

PATIENT
  Age: 68 Year
  Sex: Male

DRUGS (9)
  1. IBRUTINIB [Suspect]
     Route: 048
  2. IBRUTINIB [Suspect]
     Indication: MANTLE CELL LYMPHOMA
     Route: 048
     Dates: start: 20130718
  3. RITUXIMAB [Suspect]
     Indication: MANTLE CELL LYMPHOMA
     Route: 042
     Dates: start: 20130718
  4. SIMVASTATIN [Concomitant]
     Indication: HYPERLIPIDAEMIA
     Route: 048
  5. LISINOPRIL [Concomitant]
     Indication: HYPERTENSION
     Route: 048
  6. METFORMIN [Concomitant]
     Indication: DIABETES MELLITUS
     Route: 048
  7. SITAGLIPTIN [Concomitant]
     Indication: DIABETES MELLITUS
     Route: 048
  8. INSULIN LISPRO [Concomitant]
     Indication: DIABETES MELLITUS
     Route: 058
  9. INSULIN GLARGINE [Concomitant]
     Indication: DIABETES MELLITUS
     Route: 058

REACTIONS (2)
  - Erythroleukaemia [Unknown]
  - Syncope [Unknown]
